FAERS Safety Report 9145820 (Version 3)
Quarter: 2013Q1

REPORT INFORMATION
  Report Type: Report from Study
  Country: CA (occurrence: CA)
  Receive Date: 20130307
  Receipt Date: 20130312
  Transmission Date: 20140127
  Serious: Yes (Death)
  Sender: FDA-Public Use
  Company Number: PHHY2013CA022139

PATIENT
  Age: 44 Year
  Sex: Male

DRUGS (3)
  1. CLOZARIL [Suspect]
     Indication: SCHIZOPHRENIA
     Dosage: UNK
     Dates: start: 20041215
  2. CLOZARIL [Suspect]
     Dosage: 300 MG/DAY
  3. RISPERDAL CONSTA [Concomitant]
     Dosage: UNK

REACTIONS (1)
  - Death [Fatal]
